FAERS Safety Report 20049334 (Version 2)
Quarter: 2021Q4

REPORT INFORMATION
  Report Type: Spontaneous
  Country: US (occurrence: US)
  Receive Date: 20211109
  Receipt Date: 20211209
  Transmission Date: 20220303
  Serious: Yes (Hospitalization)
  Sender: FDA-Public Use
  Company Number: US-ELI_LILLY_AND_COMPANY-US202111001537

PATIENT
  Age: 70 Year
  Sex: Female

DRUGS (10)
  1. TRULICITY [Interacting]
     Active Substance: DULAGLUTIDE
     Indication: Blood glucose increased
     Dosage: 0.75 MG, UNKNOWN
     Route: 065
  2. TRULICITY [Interacting]
     Active Substance: DULAGLUTIDE
     Indication: Blood glucose increased
     Dosage: 0.75 MG, UNKNOWN
     Route: 065
  3. TRULICITY [Interacting]
     Active Substance: DULAGLUTIDE
     Indication: Blood glucose increased
     Dosage: 0.75 MG, UNKNOWN
     Route: 065
  4. TRULICITY [Interacting]
     Active Substance: DULAGLUTIDE
     Dosage: 0.75 MG, UNKNOWN
     Route: 065
  5. TRULICITY [Interacting]
     Active Substance: DULAGLUTIDE
     Dosage: 0.75 MG, UNKNOWN
     Route: 065
  6. TRULICITY [Interacting]
     Active Substance: DULAGLUTIDE
     Dosage: 0.75 MG, UNKNOWN
     Route: 065
  7. TRULICITY [Interacting]
     Active Substance: DULAGLUTIDE
     Dosage: 0.75 MG, UNKNOWN
     Route: 065
  8. MODERNA COVID-19 VACCINE [Interacting]
     Active Substance: ELASOMERAN
     Indication: Prophylaxis
     Dosage: UNK UNK, UNKNOWN
     Route: 065
  9. METFORMIN [Concomitant]
     Active Substance: METFORMIN HYDROCHLORIDE
     Indication: Type 2 diabetes mellitus
  10. GLIPIZIDE [Concomitant]
     Active Substance: GLIPIZIDE
     Indication: Type 2 diabetes mellitus

REACTIONS (9)
  - Pruritus [Recovered/Resolved]
  - Burning sensation [Recovering/Resolving]
  - Blister [Recovering/Resolving]
  - Erythema [Recovering/Resolving]
  - Rash [Recovering/Resolving]
  - Drug interaction [Recovering/Resolving]
  - Injection site haemorrhage [Unknown]
  - Injection site pain [Unknown]
  - Extra dose administered [Unknown]

NARRATIVE: CASE EVENT DATE: 20210929
